FAERS Safety Report 7620737-0 (Version None)
Quarter: 2011Q3

REPORT INFORMATION
  Report Type: 
  Country: None (occurrence: None)
  Receive Date: 20110719
  Receipt Date: 20110711
  Transmission Date: 20111222
  Serious: Yes (Hospitalization)
  Sender: FDA-Public Use
  Company Number: JP-GLAXOSMITHKLINE-B0733257A

PATIENT
  Age: 7 Decade
  Sex: Female

DRUGS (8)
  1. VALPROATE SODIUM [Concomitant]
     Indication: DEPRESSION
     Route: 048
     Dates: start: 20060101
  2. PAXIL [Suspect]
     Indication: DEPRESSION
     Route: 048
     Dates: start: 20060101
  3. OLANZAPINE [Concomitant]
     Indication: DEPRESSION
     Route: 048
     Dates: start: 20060101
  4. BIPERIDEN HYDROCHLORIDE TAB [Concomitant]
     Indication: DEPRESSION
     Route: 048
     Dates: start: 20060101
  5. LEVOTHYROXINE SODIUM [Concomitant]
     Indication: HYPOTHYROIDISM
     Route: 048
     Dates: start: 20090101
  6. CLONAZEPAM [Concomitant]
     Indication: DEPRESSION
     Route: 048
     Dates: start: 20060101
  7. LORAZEPAM [Concomitant]
     Route: 048
     Dates: start: 20060101
  8. NITRAZEPAM [Concomitant]
     Indication: DEPRESSION
     Route: 048
     Dates: start: 20060101

REACTIONS (6)
  - INAPPROPRIATE ANTIDIURETIC HORMONE SECRETION [None]
  - ALTERED STATE OF CONSCIOUSNESS [None]
  - POLYDIPSIA [None]
  - THIRST [None]
  - VOMITING [None]
  - MALAISE [None]
